FAERS Safety Report 9541654 (Version 2)
Quarter: 2013Q3

REPORT INFORMATION
  Report Type: Spontaneous
  Country: FI (occurrence: FI)
  Receive Date: 20130923
  Receipt Date: 20130923
  Transmission Date: 20140515
  Serious: Yes (Hospitalization)
  Sender: FDA-Public Use
  Company Number: FI-ELI_LILLY_AND_COMPANY-FI201308009897

PATIENT
  Age: 32 Year
  Sex: Male

DRUGS (3)
  1. ZYPADHERA [Suspect]
     Indication: SCHIZOAFFECTIVE DISORDER
     Dosage: 405 MG, EVERY TWO WEEKS
     Route: 030
     Dates: start: 20121119, end: 20130819
  2. ZYPREXA [Suspect]
     Dosage: 30 MG, QD
  3. LITO [Concomitant]
     Dosage: 1200 MG, QD

REACTIONS (3)
  - Staphylococcal abscess [Recovered/Resolved]
  - Local swelling [Recovered/Resolved]
  - Prescribed overdose [Recovered/Resolved]
